FAERS Safety Report 5945608-7 (Version None)
Quarter: 2008Q4

REPORT INFORMATION
  Report Type: 
  Country: None (occurrence: None)
  Receive Date: 20081107
  Receipt Date: 20081028
  Transmission Date: 20090506
  Serious: Yes (Other)
  Sender: FDA-Public Use
  Company Number: US-ABBOTT-08P-163-0484334-00

PATIENT
  Sex: Female
  Weight: 56.296 kg

DRUGS (8)
  1. HUMIRA [Suspect]
     Indication: RHEUMATOID ARTHRITIS
     Route: 058
     Dates: start: 20070101, end: 20080801
  2. HUMIRA [Suspect]
     Route: 058
     Dates: start: 20081020
  3. TOPIRAMATE [Concomitant]
     Indication: MIGRAINE PROPHYLAXIS
     Route: 048
     Dates: start: 20081020
  4. RIZATRIPTAN BENZOATE [Concomitant]
     Indication: MIGRAINE
     Route: 048
     Dates: start: 20080301
  5. ESOMEPRAZOLE MAGNESIUM [Concomitant]
     Indication: GASTRIC ULCER
     Route: 048
     Dates: start: 20080801
  6. ESOMEPRAZOLE MAGNESIUM [Concomitant]
     Indication: HYPERCHLORHYDRIA
  7. MACROGOL [Concomitant]
     Indication: CONSTIPATION
     Route: 048
     Dates: start: 20050101
  8. XAXAX [Concomitant]
     Indication: ANXIETY

REACTIONS (10)
  - ARTHRALGIA [None]
  - DEVICE BREAKAGE [None]
  - DEVICE INTERACTION [None]
  - FALL [None]
  - GAIT DISTURBANCE [None]
  - HEAD INJURY [None]
  - IMPAIRED HEALING [None]
  - MIGRAINE [None]
  - POST CONCUSSION SYNDROME [None]
  - SWELLING [None]
